FAERS Safety Report 24602644 (Version 1)
Quarter: 2024Q4

REPORT INFORMATION
  Report Type: Report from Study
  Country: US (occurrence: US)
  Receive Date: 20241111
  Receipt Date: 20241111
  Transmission Date: 20250114
  Serious: Yes (Hospitalization, Other)
  Sender: BAXTER
  Company Number: US-BAXTER-2023BAX028738

PATIENT
  Age: 12 Year
  Sex: Female
  Weight: 34.9 kg

DRUGS (12)
  1. CYCLOPHOSPHAMIDE [Suspect]
     Active Substance: CYCLOPHOSPHAMIDE
     Indication: B-cell type acute leukaemia
     Dosage: 1190 MG ON DAY 29, LAST DOSE PRIOR TO THE SAE
     Route: 042
     Dates: start: 20230530
  2. RUXOLITINIB [Suspect]
     Active Substance: RUXOLITINIB
     Indication: B-cell type acute leukaemia
     Dosage: 60 MG, BID ON DAYS 29-42, LAST DOSE PRIOR TO SAE
     Route: 048
     Dates: start: 20230530
  3. RUXOLITINIB [Suspect]
     Active Substance: RUXOLITINIB
     Dosage: UNK, LAST DOSE PRIOR TO SAE
     Route: 048
     Dates: start: 20230612
  4. CYTARABINE [Suspect]
     Active Substance: CYTARABINE
     Indication: B-cell type acute leukaemia
     Dosage: 89 MG QD ON DAYS 29-32 AND DAYS 36-39
     Route: 042
     Dates: start: 20230530
  5. CYTARABINE [Suspect]
     Active Substance: CYTARABINE
     Dosage: UNK, LAST DOSE PRIOR TO THE SAE
     Route: 042
     Dates: start: 20230609
  6. METHOTREXATE [Suspect]
     Active Substance: METHOTREXATE
     Indication: B-cell type acute leukaemia
     Dosage: 15 MG ON DAYS 29 AND 36
     Route: 037
     Dates: start: 20230530
  7. METHOTREXATE [Suspect]
     Active Substance: METHOTREXATE
     Dosage: UNK, LAST DOSE OF PRIOR TO THE SAE
     Route: 037
     Dates: start: 20230606
  8. THIOGUANINE [Suspect]
     Active Substance: THIOGUANINE
     Indication: B-cell type acute leukaemia
     Dosage: 60 MG FOR THREE DAYS/WEEK FOR TWO WEEKS, 80 MG FOR 4 DAYS/WEEK FOR TWO WEEKS (DAY 29-42)
     Route: 048
     Dates: start: 20230601
  9. THIOGUANINE [Suspect]
     Active Substance: THIOGUANINE
     Dosage: UNK, LAST DOSE PRIOR TO THE SAE
     Route: 048
     Dates: start: 20230614
  10. VINCRISTINE [Suspect]
     Active Substance: VINCRISTINE
     Indication: B-cell type acute leukaemia
     Dosage: 1.79 MILLIGRAM ON DAYS 43 AND 50
     Route: 042
     Dates: start: 20230613
  11. VINCRISTINE [Suspect]
     Active Substance: VINCRISTINE
     Dosage: UNK, LAST DOSE OF PRIOR TO THE SAE
     Route: 042
     Dates: start: 20230620
  12. PEGASPARGASE [Suspect]
     Active Substance: PEGASPARGASE
     Indication: B-cell type acute leukaemia
     Dosage: 3000 UNITS ON DAY 43, LAST DOSE PRIOR TO THE SAE
     Route: 042
     Dates: start: 20230613

REACTIONS (1)
  - Febrile neutropenia [Recovered/Resolved]

NARRATIVE: CASE EVENT DATE: 20230621
